FAERS Safety Report 12547174 (Version 1)
Quarter: 2016Q3

REPORT INFORMATION
  Report Type: Spontaneous
  Country: US (occurrence: US)
  Receive Date: 20160711
  Receipt Date: 20160711
  Transmission Date: 20161109
  Serious: Yes (Other)
  Sender: FDA-Public Use
  Company Number: US-IMPAX LABORATORIES, INC-2016-IPXL-00720

PATIENT
  Age: 61 Year
  Sex: Female

DRUGS (1)
  1. CHLOROQUINE PHOSPHATE. [Suspect]
     Active Substance: CHLOROQUINE PHOSPHATE
     Indication: SYSTEMIC LUPUS ERYTHEMATOSUS
     Route: 065

REACTIONS (5)
  - Restrictive cardiomyopathy [Recovered/Resolved]
  - Cardiac valve disease [Recovering/Resolving]
  - Heart valve incompetence [Recovering/Resolving]
  - Atrioventricular block complete [Recovering/Resolving]
  - Cardiac failure congestive [Recovering/Resolving]
